FAERS Safety Report 11152818 (Version 2)
Quarter: 2015Q4

REPORT INFORMATION
  Report Type: Other
  Country: IT (occurrence: IT)
  Receive Date: 20150601
  Receipt Date: 20151112
  Transmission Date: 20160304
  Serious: Yes (Death, Hospitalization)
  Sender: FDA-Public Use
  Company Number: IT-ASTELLAS-2015US018648

PATIENT
  Age: 44 Year
  Sex: Female

DRUGS (5)
  1. ERLOTINIB [Suspect]
     Active Substance: ERLOTINIB
     Indication: NON-SMALL CELL LUNG CANCER STAGE IV
     Route: 048
     Dates: start: 20150423, end: 20150515
  2. DIFLUCAN [Concomitant]
     Active Substance: FLUCONAZOLE
     Indication: PRODUCT USED FOR UNKNOWN INDICATION
     Dosage: UNK UNK, UNKNOWN FREQ. (10 MG/ML POWDER FOR ORAL SUSPENSION, 1 X 60 ML BOTTLE)
     Route: 048
     Dates: start: 20150423, end: 20150519
  3. SOLDESAM [Concomitant]
     Active Substance: DEXAMETHASONE
     Indication: PRODUCT USED FOR UNKNOWN INDICATION
     Dosage: 16 MG, UNKNOWN FREQ. (10 ML BOTTLE)
     Route: 048
     Dates: start: 20150423, end: 20150518
  4. OMEPRAZEN                          /00661201/ [Concomitant]
     Active Substance: OMEPRAZOLE
     Indication: PRODUCT USED FOR UNKNOWN INDICATION
     Dosage: 20 MG, UNKNOWN FREQ. (14 GASTRORESISTANT CAPSULES, HARD)
     Route: 048
     Dates: start: 20150423, end: 20150518
  5. TACHIDOL [Concomitant]
     Active Substance: ACETAMINOPHEN\CODEINE PHOSPHATE
     Indication: PRODUCT USED FOR UNKNOWN INDICATION
     Dosage: 1000 MG, UNKNOWN FREQ. (500 MG/30 MG FILM-COATED TABLETS 16 SCORED TABLETS)
     Route: 048
     Dates: start: 20150423, end: 20150518

REACTIONS (4)
  - Confusional state [Fatal]
  - Pain in extremity [Fatal]
  - Pyrexia [Fatal]
  - Necrotising fasciitis [Fatal]

NARRATIVE: CASE EVENT DATE: 20150518
